FAERS Safety Report 10065214 (Version 1)
Quarter: 2014Q1

REPORT INFORMATION
  Report Type: Spontaneous
  Country: US (occurrence: None)
  Receive Date: 20140328
  Receipt Date: 20140328
  Transmission Date: 20141002
  Serious: No
  Sender: FDA-Public Use
  Company Number: CABO-13003835

PATIENT
  Age: 71 Year
  Sex: Male

DRUGS (12)
  1. COMETRIQ (CABOZANTINIB) CAPSULE [Suspect]
     Indication: THYROID CANCER
     Route: 048
     Dates: start: 20131113
  2. SIMVASTATIN [Concomitant]
  3. OMEPRAZOLE [Concomitant]
  4. ATENOLOL [Concomitant]
  5. VASOTEC [Concomitant]
  6. ISOSORBIDE DINITRATE [Concomitant]
  7. ASPIRIN [Concomitant]
  8. CALCITRIOL [Concomitant]
  9. SYNTHROID [Concomitant]
  10. TUMS [Concomitant]
  11. LOMOTIL [Concomitant]
  12. ZOFRAN [Concomitant]

REACTIONS (2)
  - Nasopharyngitis [None]
  - Dyspnoea [None]
